FAERS Safety Report 9417022 (Version 1)
Quarter: 2013Q3

REPORT INFORMATION
  Report Type: Spontaneous
  Country: US (occurrence: None)
  Receive Date: 20130722
  Receipt Date: 20130722
  Transmission Date: 20140515
  Serious: Yes (Hospitalization)
  Sender: FDA-Public Use
  Company Number: ACO_34942_2013

PATIENT
  Age: 71 Year
  Sex: Female

DRUGS (15)
  1. AMPYRA (DALFAMPRIDINE) TABLET, 10MG [Suspect]
     Indication: MULTIPLE SCLEROSIS
     Route: 048
     Dates: end: 201110
  2. VITAMIN C [Concomitant]
  3. BABY ASPIRIN (ACETYLSALICYLIC ACID) [Concomitant]
  4. LIPITOR (ATORVASTATIN CALCIUM) [Concomitant]
  5. BETASERON (ALBUMIN HUMAN, GLUCOSE, INTERFERON BETA) [Concomitant]
  6. PLAVIX (CLOPIDOGREL BISULFATE) [Concomitant]
  7. SYNTHROID (LEVOTHYROXINE SODIUM) [Concomitant]
  8. ZESTRIL (LISINOPRIL) [Concomitant]
  9. GLUCOPHAGE (METFORMIN HYDROCHLORIDE) [Concomitant]
  10. ZAROXOLYN (METOLAZONE) [Concomitant]
  11. TOPROL (METOPROLOL SUCCINATE) [Concomitant]
  12. LOVAZA (OMEGA-3-ACID ETHYL ESTER) [Concomitant]
  13. KLOR-CON (POTASSIUM CHLORIDE) [Concomitant]
  14. VITAMIN B6 (PYRIDOXIINE HYDROCHLORIDE) [Concomitant]
  15. DEMADEX (TORASEMIDE) [Concomitant]

REACTIONS (3)
  - Incoherent [None]
  - Gait disturbance [None]
  - Asthenia [None]
